FAERS Safety Report 21740869 (Version 7)
Quarter: 2023Q1

REPORT INFORMATION
  Report Type: Spontaneous
  Country: US (occurrence: US)
  Receive Date: 20221216
  Receipt Date: 20230203
  Transmission Date: 20230417
  Serious: Yes (Hospitalization, Other)
  Sender: FDA-Public Use
  Company Number: US-JNJFOC-20221234733

PATIENT
  Age: 60 Year
  Sex: Male

DRUGS (7)
  1. OPSUMIT [Suspect]
     Active Substance: MACITENTAN
     Indication: Product used for unknown indication
     Route: 048
     Dates: start: 20220110
  2. OPSUMIT [Suspect]
     Active Substance: MACITENTAN
     Route: 048
     Dates: start: 2018
  3. UPTRAVI [Suspect]
     Active Substance: SELEXIPAG
     Indication: Pulmonary arterial hypertension
     Route: 048
     Dates: start: 2018, end: 202212
  4. REMODULIN [Suspect]
     Active Substance: TREPROSTINIL
     Indication: Product used for unknown indication
     Route: 065
  5. REMODULIN [Suspect]
     Active Substance: TREPROSTINIL
     Route: 065
  6. ADEMPAS [Concomitant]
     Active Substance: RIOCIGUAT
  7. XARELTO [Concomitant]
     Active Substance: RIVAROXABAN

REACTIONS (9)
  - Blood pressure decreased [Unknown]
  - Fluid retention [Recovered/Resolved]
  - Renal disorder [Unknown]
  - Infusion site pain [Not Recovered/Not Resolved]
  - Oedema peripheral [Not Recovered/Not Resolved]
  - Abdominal pain lower [Unknown]
  - Memory impairment [Unknown]
  - Thinking abnormal [Unknown]
  - Rales [Unknown]

NARRATIVE: CASE EVENT DATE: 20221201
